FAERS Safety Report 9522867 (Version 1)
Quarter: 2013Q1

REPORT INFORMATION
  Report Type: Spontaneous
  Country: US (occurrence: None)
  Receive Date: 20130305
  Receipt Date: 20130305
  Transmission Date: 20140127
  Serious: Yes (Disabling)
  Sender: FDA-Public Use
  Company Number: 163-21880-12032414

PATIENT
  Age: 88 Year
  Sex: Female

DRUGS (6)
  1. REVLIMID [Suspect]
     Indication: PLASMA CELL MYELOMA
     Dosage: 5 MG, EVERY OTHER DAY X 21D/28D, PO
     Route: 048
     Dates: start: 201201, end: 20120127
  2. DEXAMETHASONE (DEXAMETHASONE) [Concomitant]
  3. HYDRALAZINE (HYDRALAZINE) [Concomitant]
  4. VERAPAMIL (VERAPAMIL) [Concomitant]
  5. PRAZOSIN (PRAZOSIN) [Concomitant]
  6. CLOPIDOGREL (CLOPIDOGREL) [Concomitant]

REACTIONS (2)
  - Fatigue [None]
  - Dizziness [None]
